FAERS Safety Report 4358891-9 (Version None)
Quarter: 2004Q2

REPORT INFORMATION
  Report Type: 
  Country: None (occurrence: None)
  Receive Date: 20040517
  Receipt Date: 20040414
  Transmission Date: 20050107
  Serious: Yes (Hospitalization)
  Sender: FDA-Public Use
  Company Number: PHHO2004US05562

PATIENT
  Age: 54 Year
  Sex: Male
  Weight: 79 kg

DRUGS (6)
  1. GLEEVEC [Suspect]
     Indication: MEDULLARY THYROID CANCER
     Dosage: 400 MG, BID
     Route: 048
     Dates: start: 20040331, end: 20040404
  2. SYNTHROID [Concomitant]
  3. LONOX [Concomitant]
  4. EQUATE [Concomitant]
  5. NAPROSYN [Concomitant]
  6. CHOLESTYRAMINE [Concomitant]

REACTIONS (8)
  - ABDOMINAL DISCOMFORT [None]
  - ASCITES [None]
  - ASPIRATION PLEURAL CAVITY [None]
  - ASTHENIA [None]
  - DYSPNOEA [None]
  - HEPATIC CIRRHOSIS [None]
  - OEDEMA [None]
  - PLEURAL EFFUSION [None]
